FAERS Safety Report 9823487 (Version 2)
Quarter: 2014Q1

REPORT INFORMATION
  Report Type: Spontaneous
  Country: US (occurrence: US)
  Receive Date: 20140116
  Receipt Date: 20140116
  Transmission Date: 20141002
  Serious: No
  Sender: FDA-Public Use
  Company Number: US-GILEAD-2011-0035260

PATIENT
  Sex: Female

DRUGS (1)
  1. LETAIRIS [Suspect]
     Indication: PRODUCT USED FOR UNKNOWN INDICATION
     Route: 048
     Dates: start: 20100506, end: 20110128

REACTIONS (6)
  - Lip exfoliation [Unknown]
  - Tongue disorder [Unknown]
  - Sinusitis [Unknown]
  - Sinus headache [Unknown]
  - Sinusitis [Unknown]
  - Drug hypersensitivity [Unknown]
